FAERS Safety Report 5234378-6 (Version None)
Quarter: 2007Q1

REPORT INFORMATION
  Report Type: 
  Country: None (occurrence: None)
  Receive Date: 20070209
  Receipt Date: 20070131
  Transmission Date: 20070707
  Serious: Yes (Hospitalization)
  Sender: FDA-Public Use
  Company Number: JP-KINGPHARMUSA00001-K200700069

PATIENT

DRUGS (2)
  1. EPIPEN [Suspect]
     Indication: ASTHMA
     Dosage: 2.7 MG
     Route: 058
     Dates: start: 20030217, end: 20030217
  2. METHYLPREDNISOLONE 16MG TAB [Concomitant]
     Indication: ASTHMA
     Route: 042

REACTIONS (27)
  - BLOOD PH DECREASED [None]
  - BLOOD PRESSURE INCREASED [None]
  - BODY TEMPERATURE INCREASED [None]
  - C-REACTIVE PROTEIN INCREASED [None]
  - CARDIOMYOPATHY [None]
  - COMMUNICATION DISORDER [None]
  - DRUG INEFFECTIVE [None]
  - DYSPNOEA [None]
  - ECHOCARDIOGRAM ABNORMAL [None]
  - ELECTROCARDIOGRAM ABNORMAL [None]
  - EOSINOPHIL PERCENTAGE DECREASED [None]
  - HEART RATE INCREASED [None]
  - IMMOBILE [None]
  - LYMPHOCYTE PERCENTAGE DECREASED [None]
  - MYOSIN INCREASED [None]
  - NEUTROPHIL PERCENTAGE INCREASED [None]
  - OEDEMA PERIPHERAL [None]
  - ORTHOPNOEA [None]
  - PCO2 INCREASED [None]
  - PLATELET COUNT DECREASED [None]
  - PO2 INCREASED [None]
  - RALES [None]
  - RESPIRATORY RATE INCREASED [None]
  - STRIDOR [None]
  - TROPONIN T INCREASED [None]
  - VASODILATATION [None]
  - WHITE BLOOD CELL COUNT INCREASED [None]
